FAERS Safety Report 7503953-8 (Version None)
Quarter: 2011Q2

REPORT INFORMATION
  Report Type: 
  Country: None (occurrence: None)
  Receive Date: 20110525
  Receipt Date: 20110523
  Transmission Date: 20111010
  Serious: Yes (Hospitalization, Other)
  Sender: FDA-Public Use
  Company Number: HU-BRISTOL-MYERS SQUIBB COMPANY-14384556

PATIENT
  Age: 61 Year
  Sex: Male
  Weight: 50 kg

DRUGS (6)
  1. ONDANSETRON [Concomitant]
     Indication: PROPHYLAXIS
     Dosage: TWICE
     Dates: start: 20081006
  2. CETUXIMAB [Suspect]
     Indication: GASTROOESOPHAGEAL CANCER
     Dosage: RECENT INFUSION ON 16SEP08 STRENGTH:5MG/ML
     Route: 041
     Dates: start: 20080722, end: 20080916
  3. COVEREX [Concomitant]
     Route: 048
     Dates: start: 20070101
  4. CAPECITABINE [Suspect]
     Indication: GASTROOESOPHAGEAL CANCER
     Dosage: RECENT INFUSION ON 10OCT08;ON DAY 1-15. TABS
     Route: 048
     Dates: start: 20080722, end: 20081010
  5. DOXYCYCLINE [Concomitant]
     Dates: start: 20080805, end: 20080810
  6. CISPLATIN [Suspect]
     Indication: GASTROOESOPHAGEAL CANCER
     Dosage: RECENT INFUSION ON 10OCT08;ON DAY 1 OF CYCLE
     Route: 042
     Dates: start: 20080722

REACTIONS (1)
  - PULMONARY EMBOLISM [None]
